FAERS Safety Report 17428039 (Version 5)
Quarter: 2020Q3

REPORT INFORMATION
  Report Type: Report from Study
  Country: CO (occurrence: CO)
  Receive Date: 20200217
  Receipt Date: 20200810
  Transmission Date: 20201102
  Serious: Yes (Hospitalization)
  Sender: FDA-Public Use
  Company Number: CO-SHIRE-CO202005412

PATIENT

DRUGS (3)
  1. HYQVIA [Suspect]
     Active Substance: HUMAN IMMUNOGLOBULIN G\HYALURONIDASE RECOMBINANT HUMAN
     Dosage: UNK
     Route: 065
     Dates: start: 202001
  2. HYQVIA [Suspect]
     Active Substance: HUMAN IMMUNOGLOBULIN G\HYALURONIDASE RECOMBINANT HUMAN
     Indication: PRIMARY IMMUNODEFICIENCY SYNDROME
     Dosage: 10 GRAM
     Route: 058
     Dates: start: 20200208
  3. HYQVIA [Suspect]
     Active Substance: HUMAN IMMUNOGLOBULIN G\HYALURONIDASE RECOMBINANT HUMAN
     Indication: SELECTIVE IGG SUBCLASS DEFICIENCY
     Dosage: 100 MILLIGRAM PER MILLILITRE, UNKNOWN
     Route: 058
     Dates: start: 20191226

REACTIONS (9)
  - Erythema [Recovering/Resolving]
  - Oedema [Unknown]
  - Pain [Unknown]
  - Headache [Unknown]
  - Vomiting [Recovering/Resolving]
  - Injection site pain [Recovered/Resolved with Sequelae]
  - Injection site mass [Recovered/Resolved with Sequelae]
  - Abdominal pain [Recovering/Resolving]
  - Infusion site extravasation [Recovered/Resolved]

NARRATIVE: CASE EVENT DATE: 20191226
